FAERS Safety Report 16049233 (Version 1)
Quarter: 2019Q1

REPORT INFORMATION
  Report Type: Spontaneous
  Country: ES (occurrence: ES)
  Receive Date: 20190307
  Receipt Date: 20190307
  Transmission Date: 20190418
  Serious: Yes (Life-Threatening, Hospitalization, Other)
  Sender: FDA-Public Use
  Company Number: ES-GLAXOSMITHKLINE-ES2019040724

PATIENT
  Age: 55 Year
  Sex: Male
  Weight: 78 kg

DRUGS (5)
  1. PRAVAFENIX [Concomitant]
     Active Substance: FENOFIBRATE\PRAVASTATIN
     Indication: HYPERCHOLESTEROLAEMIA
     Dosage: UNK
     Route: 065
  2. BUPROPION. [Suspect]
     Active Substance: BUPROPION
     Indication: DEPRESSION
     Dosage: 150 MG/24 HOURS
     Route: 048
     Dates: start: 20180726, end: 20181012
  3. VIAGRA [Suspect]
     Active Substance: SILDENAFIL CITRATE
     Indication: PRODUCT USED FOR UNKNOWN INDICATION
     Dosage: UNK
     Route: 065
     Dates: start: 20181013
  4. ALLOPURINOL. [Concomitant]
     Active Substance: ALLOPURINOL
     Indication: HYPERURICAEMIA
     Dosage: 0-1-0
     Route: 065
  5. BUPROPION. [Suspect]
     Active Substance: BUPROPION
     Dosage: 300MG/24H
     Route: 048
     Dates: start: 20181013, end: 20181014

REACTIONS (1)
  - Focal dyscognitive seizures [Recovered/Resolved]

NARRATIVE: CASE EVENT DATE: 20181014
